FAERS Safety Report 9420120 (Version 1)
Quarter: 2013Q3

REPORT INFORMATION
  Report Type: Spontaneous
  Country: US (occurrence: None)
  Receive Date: 20130724
  Receipt Date: 20130724
  Transmission Date: 20140515
  Serious: Yes (Hospitalization)
  Sender: FDA-Public Use
  Company Number: None

PATIENT
  Age: 94 Year
  Sex: Female
  Weight: 104 kg

DRUGS (11)
  1. RIVAROXABAN [Suspect]
     Indication: ATRIAL FIBRILLATION
     Dates: start: 20130328, end: 20130331
  2. LEVALBUTEROL [Concomitant]
  3. IPRATROPIUM [Concomitant]
  4. HYDRALAZINE HCL [Concomitant]
  5. LEVOFLOXACIN [Concomitant]
  6. METHYLPREDNISOLONE [Concomitant]
  7. PANTOPRAZOLE [Concomitant]
  8. PHYTONADIONE [Concomitant]
  9. ALBUTEROL [Concomitant]
  10. DILTIAZEM [Concomitant]
  11. FUROSEMIDE [Concomitant]

REACTIONS (5)
  - Petechiae [None]
  - Haematochezia [None]
  - Dyspnoea [None]
  - Cough [None]
  - Hypoxia [None]
